FAERS Safety Report 23521043 (Version 1)
Quarter: 2024Q1

REPORT INFORMATION
  Report Type: 
  Country: None (occurrence: None)
  Receive Date: 20240214
  Receipt Date: 20240214
  Transmission Date: 20240410
  Serious: No
  Sender: FDA-Public Use
  Company Number: SA-ROCHE-3507071

PATIENT

DRUGS (5)
  1. RITUXIMAB [Suspect]
     Active Substance: RITUXIMAB
  2. CYCLOPHOSPHAMIDE [Suspect]
     Active Substance: CYCLOPHOSPHAMIDE
  3. DOXORUBICIN [Suspect]
     Active Substance: DOXORUBICIN
  4. VINCRISTINE [Suspect]
     Active Substance: VINCRISTINE
  5. PREDNISONE [Suspect]
     Active Substance: PREDNISONE

REACTIONS (8)
  - Febrile neutropenia [None]
  - Haematemesis [None]
  - Upper gastrointestinal haemorrhage [None]
  - Melaena [None]
  - Nausea [None]
  - Vomiting [None]
  - Fatigue [None]
  - Alopecia [None]
